FAERS Safety Report 8999773 (Version 1)
Quarter: 2013Q1

REPORT INFORMATION
  Report Type: Spontaneous
  Country: PL (occurrence: PL)
  Receive Date: 20130102
  Receipt Date: 20130102
  Transmission Date: 20140127
  Serious: Yes (Hospitalization, Other)
  Sender: FDA-Public Use
  Company Number: PL-ROCHE-1173181

PATIENT
  Age: 69 Year
  Sex: Female

DRUGS (7)
  1. BONVIVA [Suspect]
     Indication: OSTEOPOROSIS
     Route: 048
     Dates: start: 20120629, end: 20120718
  2. ZOCOR [Concomitant]
     Route: 065
  3. CONCOR [Concomitant]
     Route: 065
  4. TENSARTAN [Concomitant]
     Dosage: 160MG +25 MG
     Route: 065
  5. AXTIL [Concomitant]
     Route: 065
  6. TRIFAS (LITHUANIA) [Concomitant]
  7. CALPEROS [Concomitant]

REACTIONS (12)
  - Bone pain [Recovered/Resolved with Sequelae]
  - Myalgia [Recovered/Resolved with Sequelae]
  - Pyrexia [Recovered/Resolved with Sequelae]
  - Chills [Unknown]
  - Spinal pain [Unknown]
  - Arthralgia [Unknown]
  - Red blood cell sedimentation rate increased [Unknown]
  - Influenza like illness [Unknown]
  - C-reactive protein increased [Unknown]
  - Diarrhoea [Unknown]
  - Pain in extremity [Unknown]
  - Arthralgia [Unknown]
